FAERS Safety Report 9943076 (Version 3)
Quarter: 2014Q1

REPORT INFORMATION
  Report Type: Spontaneous
  Country: BR (occurrence: BR)
  Receive Date: 20140303
  Receipt Date: 20140325
  Transmission Date: 20141002
  Serious: No
  Sender: FDA-Public Use
  Company Number: BR-SA-2014SA011448

PATIENT
  Age: 42 Year
  Sex: Female
  Weight: 83 kg

DRUGS (15)
  1. LANTUS [Suspect]
     Indication: TYPE 2 DIABETES MELLITUS
     Route: 058
     Dates: start: 2009
  2. LANTUS [Suspect]
     Indication: TYPE 2 DIABETES MELLITUS
     Route: 065
     Dates: start: 2010
  3. CLIKSTAR [Suspect]
     Indication: DEVICE THERAPY
     Dates: start: 2009
  4. APIDRA [Concomitant]
     Indication: TYPE 2 DIABETES MELLITUS
     Route: 058
     Dates: start: 2012
  5. CARVEDILOL [Concomitant]
     Indication: HYPERTENSION
     Route: 048
  6. LEVAMLODIPINE [Concomitant]
     Indication: HYPERTENSION
  7. ATENSINA [Concomitant]
     Indication: HYPERTENSION
  8. VALSARTAN [Concomitant]
     Indication: HYPERTENSION
     Dates: start: 2012
  9. DIMETICONE [Concomitant]
     Indication: CHEST PAIN
     Route: 048
  10. BROMAZEPAM [Concomitant]
     Indication: HYPERTENSION
     Route: 048
  11. SIMVASTATIN [Concomitant]
     Indication: BLOOD CHOLESTEROL
     Route: 048
  12. AAS [Concomitant]
     Route: 048
  13. FUROSEMIDE [Concomitant]
     Indication: RENAL DISORDER
     Route: 048
  14. NOVANLO [Concomitant]
     Indication: HYPERTENSION
     Route: 048
  15. OMEPRAZOLE [Concomitant]
     Indication: GASTRIC DISORDER
     Route: 048

REACTIONS (8)
  - Blood glucose increased [Recovering/Resolving]
  - Drug ineffective [Unknown]
  - Blood glucose increased [Recovering/Resolving]
  - Weight decreased [Recovering/Resolving]
  - Hypoaesthesia [Recovering/Resolving]
  - Abdominal distension [Recovering/Resolving]
  - Blood glucose decreased [Recovering/Resolving]
  - Malaise [Recovering/Resolving]
